FAERS Safety Report 5674836-3 (Version None)
Quarter: 2008Q2

REPORT INFORMATION
  Report Type: 
  Country: None (occurrence: None)
  Receive Date: 20080311
  Receipt Date: 20071105
  Transmission Date: 20081010
  Serious: Yes (Hospitalization)
  Sender: FDA-Public Use
  Company Number: 267642

PATIENT
  Age: 42 Year
  Sex: Male
  Weight: 97 kg

DRUGS (2)
  1. NOVOSEVEN [Suspect]
     Indication: HAEMARTHROSIS
     Dosage: 4.8 MG EVERY 4 HOURS, INTRAVENOUS; 4.8 MG EVERY 3 HOURS, INTRAVENOUS
     Route: 042
     Dates: end: 20070901
  2. NOVOSEVEN [Suspect]
     Indication: HAEMARTHROSIS
     Dosage: 4.8 MG EVERY 4 HOURS, INTRAVENOUS; 4.8 MG EVERY 3 HOURS, INTRAVENOUS
     Route: 042
     Dates: start: 20070901

REACTIONS (1)
  - THERAPEUTIC RESPONSE DECREASED [None]
